FAERS Safety Report 9774444 (Version 2)
Quarter: 2014Q1

REPORT INFORMATION
  Report Type: Spontaneous
  Country: US (occurrence: US)
  Receive Date: 20131220
  Receipt Date: 20140114
  Transmission Date: 20141002
  Serious: Yes (Other)
  Sender: FDA-Public Use
  Company Number: US-JNJFOC-20131209806

PATIENT
  Age: 57 Year
  Sex: Female
  Weight: 64.41 kg

DRUGS (7)
  1. SIMPONI [Suspect]
     Indication: RHEUMATOID ARTHRITIS
     Route: 058
     Dates: start: 20131212
  2. SIMPONI [Suspect]
     Indication: RHEUMATOID ARTHRITIS
     Route: 058
     Dates: start: 20130912, end: 2013
  3. SIMPONI [Suspect]
     Indication: RHEUMATOID ARTHRITIS
     Route: 058
     Dates: start: 2013
  4. KENALOG [Suspect]
     Indication: INFLAMMATORY PAIN
     Route: 065
  5. TYLENOL [Concomitant]
     Route: 065
  6. TRAMADOL [Concomitant]
     Dosage: IN THE MORNING
     Route: 065
  7. VITAMIN D [Concomitant]
     Route: 065

REACTIONS (10)
  - Fall [Unknown]
  - Tendon rupture [Unknown]
  - Ligament rupture [Unknown]
  - Weight increased [Not Recovered/Not Resolved]
  - Drug ineffective [Recovered/Resolved]
  - Arthralgia [Unknown]
  - Arthritis [Unknown]
  - Joint injury [Unknown]
  - Rheumatoid arthritis [Recovered/Resolved]
  - Device malfunction [Unknown]
